FAERS Safety Report 8824835 (Version 1)
Quarter: 2012Q4

REPORT INFORMATION
  Report Type: 
  Country: DE (occurrence: DE)
  Receive Date: 20121004
  Receipt Date: 20121004
  Transmission Date: 20130627
  Serious: Yes (Other)
  Sender: FDA-Public Use
  Company Number: DE-JNJFOC-20120909878

PATIENT
  Age: 38 Year
  Sex: Female
  Weight: 69 kg

DRUGS (6)
  1. XEPLION [Suspect]
     Indication: SCHIZOPHRENIA
     Route: 030
     Dates: start: 20120223, end: 20120223
  2. XEPLION [Suspect]
     Indication: SCHIZOPHRENIA
     Route: 030
     Dates: start: 20120215, end: 20120215
  3. MESALAZIN [Concomitant]
     Indication: CROHN^S DISEASE
     Route: 065
  4. VALPROATE SODIUM [Concomitant]
     Indication: SCHIZOPHRENIA
     Route: 048
  5. AMISULPRID [Concomitant]
     Indication: SCHIZOPHRENIA
     Route: 048
  6. RISPERIDONE [Concomitant]
     Indication: SCHIZOPHRENIA
     Route: 048

REACTIONS (2)
  - Skin swelling [Recovered/Resolved]
  - Skin fissures [Recovered/Resolved]
